FAERS Safety Report 6312450-7 (Version None)
Quarter: 2009Q3

REPORT INFORMATION
  Report Type: 
  Country: None (occurrence: None)
  Receive Date: 20090817
  Receipt Date: 20090806
  Transmission Date: 20100115
  Serious: Yes (Life-Threatening)
  Sender: FDA-Public Use
  Company Number: FR-MERCK-0907FRA00024

PATIENT
  Sex: Female

DRUGS (17)
  1. PRIMAXIN [Suspect]
     Indication: INTERSTITIAL LUNG DISEASE
     Route: 042
     Dates: start: 20090416, end: 20090422
  2. PRIMAXIN [Suspect]
     Indication: FEBRILE BONE MARROW APLASIA
     Route: 042
     Dates: start: 20090416, end: 20090422
  3. SULFAMETHOXAZOLE AND TRIMETHOPRIM [Suspect]
     Indication: INTERSTITIAL LUNG DISEASE
     Route: 065
     Dates: start: 20090120, end: 20090501
  4. SULFAMETHOXAZOLE AND TRIMETHOPRIM [Suspect]
     Indication: FEBRILE BONE MARROW APLASIA
     Route: 065
     Dates: start: 20090120, end: 20090501
  5. METRONIDAZOLE [Suspect]
     Indication: INTERSTITIAL LUNG DISEASE
     Route: 042
     Dates: start: 20090413, end: 20090420
  6. METRONIDAZOLE [Suspect]
     Indication: FEBRILE BONE MARROW APLASIA
     Route: 042
     Dates: start: 20090413, end: 20090420
  7. VANCOMYCIN [Suspect]
     Indication: INTERSTITIAL LUNG DISEASE
     Route: 042
     Dates: start: 20090413, end: 20090421
  8. VANCOMYCIN [Suspect]
     Indication: FEBRILE BONE MARROW APLASIA
     Route: 042
     Dates: start: 20090413, end: 20090421
  9. CIPROFLOXACIN HYDROCHLORIDE [Suspect]
     Indication: INTERSTITIAL LUNG DISEASE
     Route: 042
     Dates: start: 20090413, end: 20090422
  10. CIPROFLOXACIN HYDROCHLORIDE [Suspect]
     Indication: FEBRILE BONE MARROW APLASIA
     Route: 042
     Dates: start: 20090413, end: 20090422
  11. CEFTAZIDIME [Concomitant]
     Indication: INTERSTITIAL LUNG DISEASE
     Route: 065
     Dates: start: 20090412, end: 20090416
  12. CEFTAZIDIME [Concomitant]
     Indication: FEBRILE BONE MARROW APLASIA
     Route: 065
     Dates: start: 20090412, end: 20090416
  13. LOPINAVIR AND RITONAVIR [Concomitant]
     Indication: HIV TEST POSITIVE
     Route: 065
     Dates: start: 20090120
  14. EMTRICITABINE AND TENOFOVIR DISOPROXIL FUMARATE [Concomitant]
     Indication: HIV TEST POSITIVE
     Route: 065
     Dates: start: 20090120
  15. CYCLOPHOSPHAMIDE [Concomitant]
     Indication: EPSTEIN-BARR VIRUS ASSOCIATED LYMPHOPROLIFERATIVE DISORDER
     Route: 065
  16. DOXORUBICIN HYDROCHLORIDE [Concomitant]
     Indication: EPSTEIN-BARR VIRUS ASSOCIATED LYMPHOPROLIFERATIVE DISORDER
     Route: 065
  17. VINCRISTINE SULFATE [Concomitant]
     Indication: EPSTEIN-BARR VIRUS ASSOCIATED LYMPHOPROLIFERATIVE DISORDER
     Route: 065

REACTIONS (1)
  - PSEUDOMEMBRANOUS COLITIS [None]
